FAERS Safety Report 6287866-8 (Version None)
Quarter: 2009Q3

REPORT INFORMATION
  Report Type: 
  Country: None (occurrence: None)
  Receive Date: 20090729
  Receipt Date: 20090720
  Transmission Date: 20100115
  Serious: Yes (Hospitalization, Other)
  Sender: FDA-Public Use
  Company Number: CH-ELI_LILLY_AND_COMPANY-CH200907004625

PATIENT
  Sex: Female
  Weight: 119 kg

DRUGS (5)
  1. BYETTA [Suspect]
     Indication: DIABETES MELLITUS
     Dosage: 10 UG, 2/D
     Route: 058
     Dates: start: 20080517, end: 20080925
  2. AUGMENTIN /00852501/ [Concomitant]
  3. CO-APROVEL [Concomitant]
     Dosage: 150 MG, EACH MORNING
     Route: 048
  4. DIAMICRON MR [Concomitant]
     Dosage: 60 MG, DAILY (1/D)
     Route: 048
  5. PAROXETINE HCL [Concomitant]
     Dosage: 20 MG, DAILY (1/D)
     Route: 048

REACTIONS (5)
  - ADRENAL MASS [None]
  - CUSHING'S SYNDROME [None]
  - HYPERCHOLESTEROLAEMIA [None]
  - PANCREATITIS [None]
  - SLEEP APNOEA SYNDROME [None]
